FAERS Safety Report 24823818 (Version 1)
Quarter: 2025Q1

REPORT INFORMATION
  Report Type: Spontaneous
  Country: US (occurrence: US)
  Receive Date: 20250109
  Receipt Date: 20250109
  Transmission Date: 20250408
  Serious: Yes (Death, Other)
  Sender: IPSEN BIOPHARMACEUTICALS, INC.
  Company Number: US-IPSEN Group, Research and Development-2025-00547

PATIENT
  Age: 50 Year
  Sex: Female

DRUGS (5)
  1. LANREOTIDE ACETATE [Suspect]
     Active Substance: LANREOTIDE ACETATE
     Indication: Pancreatic neuroendocrine tumour
     Route: 065
  2. PEMBROLIZUMAB [Concomitant]
     Active Substance: PEMBROLIZUMAB
  3. OCTREOTIDE [Concomitant]
     Active Substance: OCTREOTIDE
  4. BEVACIZUMAB [Concomitant]
     Active Substance: BEVACIZUMAB
  5. SUNITINIB [Concomitant]
     Active Substance: SUNITINIB

REACTIONS (2)
  - Death [Fatal]
  - Malignant neoplasm progression [Unknown]
